FAERS Safety Report 9539265 (Version 2)
Quarter: 2013Q4

REPORT INFORMATION
  Report Type: Spontaneous
  Country: US (occurrence: None)
  Receive Date: 20130917
  Receipt Date: 20131018
  Transmission Date: 20140711
  Serious: Yes (Life-Threatening, Other)
  Sender: FDA-Public Use
  Company Number: IMP_06819_2013

PATIENT
  Age: 21 Year
  Sex: Male

DRUGS (1)
  1. MINOCYCLINE [Suspect]
     Indication: ACNE
     Route: 048
     Dates: start: 2009, end: 201103

REACTIONS (21)
  - Vasculitis [None]
  - Arthralgia [None]
  - Fatigue [None]
  - Weight decreased [None]
  - Testicular pain [None]
  - Varicocele [None]
  - Diarrhoea [None]
  - Nipple pain [None]
  - Musculoskeletal stiffness [None]
  - Livedo reticularis [None]
  - Aneurysm [None]
  - Skin discolouration [None]
  - Joint swelling [None]
  - Arthralgia [None]
  - Lymphadenopathy [None]
  - White blood cell count decreased [None]
  - Red blood cell sedimentation rate increased [None]
  - C-reactive protein increased [None]
  - Antineutrophil cytoplasmic antibody positive [None]
  - Antinuclear antibody positive [None]
  - Hidradenitis [None]
